FAERS Safety Report 16455243 (Version 1)
Quarter: 2019Q2

REPORT INFORMATION
  Report Type: Spontaneous
  Country: US (occurrence: US)
  Receive Date: 20190619
  Receipt Date: 20190619
  Transmission Date: 20190711
  Serious: No
  Sender: FDA-Public Use
  Company Number: US-ARRAY-2019-05665

PATIENT

DRUGS (2)
  1. BRAFTOVI [Suspect]
     Active Substance: ENCORAFENIB
     Dosage: 225 MG, QD
  2. BRAFTOVI [Suspect]
     Active Substance: ENCORAFENIB
     Indication: LUNG NEOPLASM MALIGNANT
     Dosage: UNK

REACTIONS (3)
  - Product use in unapproved indication [Unknown]
  - Skin toxicity [Unknown]
  - Melanocytic naevus [Unknown]
